FAERS Safety Report 10040089 (Version 1)
Quarter: 2014Q1

REPORT INFORMATION
  Report Type: Spontaneous
  Country: JP (occurrence: JP)
  Receive Date: 20140326
  Receipt Date: 20140326
  Transmission Date: 20141002
  Serious: Yes (Death, Hospitalization)
  Sender: FDA-Public Use
  Company Number: JP-ABBVIE-14P-087-1217602-00

PATIENT
  Age: 51 Year
  Sex: Male

DRUGS (10)
  1. VALPROIC ACID [Suspect]
     Indication: PSYCHOTIC DISORDER
     Route: 065
     Dates: start: 201301, end: 201302
  2. LITHIUM CARBONATE [Suspect]
     Indication: PSYCHOTIC DISORDER
     Route: 065
     Dates: start: 201301, end: 201302
  3. FLUPHENAZINE DECANOATE [Suspect]
     Indication: PSYCHOTIC DISORDER
     Route: 030
     Dates: start: 20130212
  4. RISPERIDONE [Suspect]
     Indication: PSYCHOTIC DISORDER
     Route: 065
     Dates: start: 201301, end: 201302
  5. ZOTEPINE [Suspect]
     Indication: PSYCHOTIC DISORDER
     Route: 065
     Dates: start: 201301, end: 201302
  6. FLUPHENAZINE DECANOATE [Concomitant]
     Indication: PRODUCT USED FOR UNKNOWN INDICATION
     Dosage: (PREV.)
     Dates: start: 1996
  7. LITHIUM [Concomitant]
     Indication: PRODUCT USED FOR UNKNOWN INDICATION
     Dosage: (PREV.)
     Dates: start: 1996
  8. ZOTEPINE [Concomitant]
     Indication: PRODUCT USED FOR UNKNOWN INDICATION
     Dosage: (PREV.)
     Dates: start: 1996
  9. HALOPERIDOL [Concomitant]
     Indication: PRODUCT USED FOR UNKNOWN INDICATION
     Dosage: (PREV.)
     Dates: start: 1996
  10. BIPERIDEN [Concomitant]
     Indication: PRODUCT USED FOR UNKNOWN INDICATION
     Dosage: (PREV.)
     Dates: start: 1996

REACTIONS (14)
  - Respiratory failure [Fatal]
  - Neuroleptic malignant syndrome [Unknown]
  - Blood pressure decreased [Unknown]
  - Pyrexia [Unknown]
  - Aphasia [Unknown]
  - Muscle rigidity [Unknown]
  - White blood cell count increased [Unknown]
  - Hyperhidrosis [Unknown]
  - Dysphagia [Unknown]
  - Salivary hypersecretion [Unknown]
  - Tachypnoea [Unknown]
  - Oxygen saturation decreased [Unknown]
  - Tachycardia [Unknown]
  - Mental status changes [Unknown]
